FAERS Safety Report 6974413-8 (Version None)
Quarter: 2010Q3

REPORT INFORMATION
  Report Type: 
  Country: None (occurrence: None)
  Receive Date: 20100909
  Receipt Date: 20080619
  Transmission Date: 20110219
  Serious: Yes (Hospitalization)
  Sender: FDA-Public Use
  Company Number: US-WYE-H04622608

PATIENT
  Sex: Male

DRUGS (1)
  1. LODINE [Suspect]
     Dosage: UNKNOWN
     Dates: start: 19980101, end: 19980101

REACTIONS (1)
  - ANAPHYLACTIC REACTION [None]
